FAERS Safety Report 5624310-5 (Version None)
Quarter: 2008Q1

REPORT INFORMATION
  Report Type: 
  Country: None (occurrence: None)
  Receive Date: 20080213
  Receipt Date: 20080201
  Transmission Date: 20080703
  Serious: Yes (Death, Other)
  Sender: FDA-Public Use
  Company Number: IT-ELI_LILLY_AND_COMPANY-IT200802000349

PATIENT
  Sex: Female

DRUGS (3)
  1. XIGRIS [Suspect]
     Indication: SEPTIC SHOCK
     Dosage: 15 MG, DAILY (1/D)
     Route: 042
     Dates: start: 20040714, end: 20040714
  2. MAXIPIME [Concomitant]
     Dosage: UNK, UNKNOWN
     Route: 042
  3. DEFLAMON [Concomitant]
     Dosage: 300 ML, UNKNOWN
     Route: 042

REACTIONS (2)
  - DEATH [None]
  - HAEMORRHAGE [None]
